FAERS Safety Report 20676546 (Version 4)
Quarter: 2022Q4

REPORT INFORMATION
  Report Type: Report from Study
  Country: PT (occurrence: PT)
  Receive Date: 20220405
  Receipt Date: 20221012
  Transmission Date: 20230112
  Serious: Yes (Other)
  Sender: FDA-Public Use
  Company Number: PT-ABBVIE-22K-130-4344813-00

PATIENT
  Sex: Male

DRUGS (17)
  1. CARBIDOPA\LEVODOPA [Suspect]
     Active Substance: CARBIDOPA\LEVODOPA
     Indication: Parkinson^s disease
     Dosage: 20 MG PLUS 5 MG?MORN 10.5CC, MAINT 3.7CC/H, EXTRA 1CC
     Route: 050
     Dates: start: 20210927, end: 2021
  2. CARBIDOPA\LEVODOPA [Suspect]
     Active Substance: CARBIDOPA\LEVODOPA
     Dosage: 20 MG PLUS 5 MG?MORN 12.1CC, MAINT 2.9CC/H, EXTRA 1CC
     Route: 050
     Dates: start: 2021, end: 20220301
  3. CARBIDOPA\LEVODOPA [Suspect]
     Active Substance: CARBIDOPA\LEVODOPA
     Dosage: 20 MG PLUS 5 MG?MORN 10.9CC, MAINT 2.7CC/H, EXTRA 1CC
     Route: 050
     Dates: start: 20220301
  4. PANTOPRAZOLE [Concomitant]
     Active Substance: PANTOPRAZOLE
     Indication: Product used for unknown indication
     Dosage: IN FASTING?STARTED BEFORE DUODOPA?1 TABLET
     Route: 048
  5. IRON POLYMALTOSE [Concomitant]
     Active Substance: IRON POLYMALTOSE
     Indication: Product used for unknown indication
     Dosage: AT BREAKFAST?STARTED BEFORE DUODOPA?1 TABLET
     Route: 048
  6. SUCRALFATE [Concomitant]
     Active Substance: SUCRALFATE
     Indication: Product used for unknown indication
     Dosage: 1000MG/5ML?1 SUSPENSION BREAKFAST, LUNCH AND DINNER?STARTED BEFORE DUODOPA
     Route: 048
  7. BISOPROLOL [Concomitant]
     Active Substance: BISOPROLOL
     Indication: Product used for unknown indication
     Dosage: AT BREAKFAST?STARTED BEFORE DUODOPA?1 TABLET
     Route: 048
  8. ONDANSETRON [Concomitant]
     Active Substance: ONDANSETRON
     Indication: Product used for unknown indication
     Dosage: 1 TABLET AT BREAKFAST AND AT DINNER
     Route: 048
  9. DOMPERIDONE [Concomitant]
     Active Substance: DOMPERIDONE
     Indication: Product used for unknown indication
     Dosage: STARTED BEFORE DUODOPA, 2 TABLETS AT BREAKFAST, LUNCH AND DINNER
     Route: 048
  10. MIDODRINE [Concomitant]
     Active Substance: MIDODRINE
     Indication: Product used for unknown indication
     Dosage: STARTED BEFORE DUODOPA, 5 TABLETS AT BREAKFAST
     Route: 048
  11. CHOLECALCIFEROL [Concomitant]
     Active Substance: CHOLECALCIFEROL
     Indication: Product used for unknown indication
     Dosage: 0,5MG/ML?3 DROPS AT BREAKFAST?STARTED BEFORE DUODOPA
     Route: 048
  12. MEMANTINE [Concomitant]
     Active Substance: MEMANTINE
     Indication: Product used for unknown indication
     Dosage: STARTED BEFORE DUODOPA, 1 TABLET AT BREAKFAST AND DINNER
     Route: 048
  13. VENLAFAXINE [Concomitant]
     Active Substance: VENLAFAXINE HYDROCHLORIDE
     Indication: Product used for unknown indication
     Dosage: STARTED BEFORE DUODOPA, 1 TABLET AT BREAKFAST
     Route: 048
  14. ATORVASTATIN [Concomitant]
     Active Substance: ATORVASTATIN
     Indication: Product used for unknown indication
     Dosage: STARTED BEFORE DUODOPA, 1 TABLET AT BREAKFAST
     Route: 048
  15. DULCOGOTAS [Concomitant]
     Indication: Product used for unknown indication
     Dosage: 7.5MG/ML?10 DROPS AT BEDTIME?STARTED BEFORE DUODOPA
     Route: 048
  16. MIRTAZAPINE [Concomitant]
     Active Substance: MIRTAZAPINE
     Indication: Product used for unknown indication
     Dosage: 1 TABLET AT BEDTIME?STARTED BEFORE DUODOPA
     Route: 048
  17. SEINESIUM [Concomitant]
     Indication: Product used for unknown indication
     Dosage: 2 TABLETS AT BEDTIME?STARTED BEFORE DUODOPA
     Route: 048

REACTIONS (8)
  - Weight decreased [Recovered/Resolved]
  - SARS-CoV-2 test positive [Recovered/Resolved]
  - Rhinorrhoea [Recovered/Resolved]
  - Mobility decreased [Not Recovered/Not Resolved]
  - Cognitive disorder [Recovered/Resolved]
  - Decreased appetite [Not Recovered/Not Resolved]
  - Dyskinesia [Recovered/Resolved]
  - Salivary hypersecretion [Not Recovered/Not Resolved]

NARRATIVE: CASE EVENT DATE: 20210101
